FAERS Safety Report 15353031 (Version 2)
Quarter: 2018Q4

REPORT INFORMATION
  Report Type: Spontaneous
  Country: GB (occurrence: GB)
  Receive Date: 20180905
  Receipt Date: 20181203
  Transmission Date: 20190204
  Serious: Yes (Hospitalization, Other)
  Sender: FDA-Public Use
  Company Number: PHHY2016GB187224

PATIENT
  Age: 36 Year
  Sex: Female

DRUGS (14)
  1. TEGRETOL [Suspect]
     Active Substance: CARBAMAZEPINE
     Dosage: UNK (400 AND 250)
     Route: 048
  2. CALCIUM GLUCONATE. [Concomitant]
     Active Substance: CALCIUM GLUCONATE
     Indication: PRODUCT USED FOR UNKNOWN INDICATION
     Dosage: UNK
     Route: 065
  3. KEPPRA [Suspect]
     Active Substance: LEVETIRACETAM
     Indication: EPILEPSY
     Dosage: 250 MG, BID (2X/DAY (BID))
     Route: 048
     Dates: start: 2004
  4. KEPPRA [Suspect]
     Active Substance: LEVETIRACETAM
     Indication: TEMPORAL LOBE EPILEPSY
     Dosage: 250 MG, BID
     Route: 048
     Dates: end: 201609
  5. KEPPRA [Suspect]
     Active Substance: LEVETIRACETAM
     Dosage: 250 MG, BID
     Route: 048
     Dates: start: 201701
  6. BRIVIACT [Suspect]
     Active Substance: BRIVARACETAM
     Indication: TEMPORAL LOBE EPILEPSY
  7. AMITRIPTYLINE HYDROCHLORIDE. [Concomitant]
     Active Substance: AMITRIPTYLINE HYDROCHLORIDE
     Indication: NASOPHARYNGITIS
     Dosage: 500 MG, TID (7 DAY COURSE 500 MG 1,3 TIMES A DAY)
     Route: 065
  8. CALCIUM [Concomitant]
     Active Substance: CALCIUM
     Indication: PRODUCT USED FOR UNKNOWN INDICATION
     Dosage: UNK
     Route: 065
  9. CARBAMAZEPINE. [Concomitant]
     Active Substance: CARBAMAZEPINE
     Indication: EPILEPSY
     Dosage: UNK
     Route: 048
  10. TEGRETOL [Suspect]
     Active Substance: CARBAMAZEPINE
     Indication: PRODUCT USED FOR UNKNOWN INDICATION
     Dosage: 400 MG, BID
     Route: 048
  11. KEPPRA [Suspect]
     Active Substance: LEVETIRACETAM
     Dosage: UNK (DOSE REDUCED TO LESS THAN 250 MG)
     Route: 048
  12. BRIVIACT [Suspect]
     Active Substance: BRIVARACETAM
     Indication: SEIZURE
     Dosage: 25 MG, BID
     Route: 048
     Dates: start: 2016, end: 201611
  13. KEPPRA [Suspect]
     Active Substance: LEVETIRACETAM
     Indication: PARTIAL SEIZURES
     Dosage: 750 MG, UNK
     Route: 048
  14. BRIVIACT [Suspect]
     Active Substance: BRIVARACETAM
     Indication: PANIC ATTACK
     Dosage: 25 MG, BID
     Route: 048
     Dates: start: 20160901, end: 2016

REACTIONS (61)
  - Autism spectrum disorder [Unknown]
  - Urinary tract infection [Not Recovered/Not Resolved]
  - Menstrual disorder [Not Recovered/Not Resolved]
  - Personality change [Not Recovered/Not Resolved]
  - Confusional state [Not Recovered/Not Resolved]
  - Oral herpes [Not Recovered/Not Resolved]
  - Nausea [Not Recovered/Not Resolved]
  - Decreased appetite [Not Recovered/Not Resolved]
  - Cerebral disorder [Unknown]
  - Coma [Unknown]
  - Drug dependence [Unknown]
  - Anxiety [Not Recovered/Not Resolved]
  - Psychomotor hyperactivity [Unknown]
  - Emotional disorder [Unknown]
  - Carbon monoxide poisoning [Not Recovered/Not Resolved]
  - Muscular weakness [Not Recovered/Not Resolved]
  - Dysphemia [Not Recovered/Not Resolved]
  - Paranoia [Not Recovered/Not Resolved]
  - Constipation [Unknown]
  - Pregnancy [Unknown]
  - Skin hyperpigmentation [Unknown]
  - Contusion [Not Recovered/Not Resolved]
  - Pain in extremity [Unknown]
  - Brain injury [Unknown]
  - Partial seizures [Unknown]
  - Amnesia [Not Recovered/Not Resolved]
  - Tonic convulsion [Recovering/Resolving]
  - Pneumonia [Not Recovered/Not Resolved]
  - Dizziness [Unknown]
  - Intentional self-injury [Unknown]
  - Lethargy [Unknown]
  - Nasopharyngitis [Unknown]
  - Pain [Unknown]
  - Perinatal depression [Unknown]
  - Stress [Not Recovered/Not Resolved]
  - Loss of consciousness [Not Recovered/Not Resolved]
  - Abortion [Unknown]
  - Seizure [Not Recovered/Not Resolved]
  - Adverse drug reaction [Not Recovered/Not Resolved]
  - Drug ineffective [Unknown]
  - Generalised tonic-clonic seizure [Not Recovered/Not Resolved]
  - Palpitations [Unknown]
  - Hyperhidrosis [Unknown]
  - Hallucination [Not Recovered/Not Resolved]
  - Anaemia [Unknown]
  - Insomnia [Unknown]
  - Drug withdrawal convulsions [Unknown]
  - Anger [Not Recovered/Not Resolved]
  - Mental disorder [Not Recovered/Not Resolved]
  - Aggression [Not Recovered/Not Resolved]
  - Enuresis [Not Recovered/Not Resolved]
  - Middle insomnia [Unknown]
  - Psychogenic seizure [Not Recovered/Not Resolved]
  - Mood swings [Not Recovered/Not Resolved]
  - Panic attack [Not Recovered/Not Resolved]
  - Weight decreased [Not Recovered/Not Resolved]
  - Fatigue [Not Recovered/Not Resolved]
  - Agitation [Not Recovered/Not Resolved]
  - Depression [Unknown]
  - Hypertension [Not Recovered/Not Resolved]
  - Aptyalism [Unknown]

NARRATIVE: CASE EVENT DATE: 2007
